FAERS Safety Report 5491180-8 (Version None)
Quarter: 2007Q4

REPORT INFORMATION
  Report Type: 
  Country: None (occurrence: None)
  Receive Date: 20071019
  Receipt Date: 20071009
  Transmission Date: 20080405
  Serious: Yes (Other)
  Sender: FDA-Public Use
  Company Number: US-PFIZER INC-2007085264

PATIENT
  Sex: Male
  Weight: 79.545 kg

DRUGS (7)
  1. LIPITOR [Suspect]
     Indication: HYPERLIPIDAEMIA
  2. ACETYLSALICYLIC ACID [Concomitant]
  3. VITAMIN CAP [Concomitant]
  4. VITAMIN D [Concomitant]
  5. PROSCAR [Concomitant]
  6. DRUG, UNSPECIFIED [Concomitant]
  7. MAXALT [Concomitant]

REACTIONS (3)
  - EOSINOPHIL COUNT INCREASED [None]
  - LYMPHOPENIA [None]
  - MONOCYTE COUNT INCREASED [None]
